FAERS Safety Report 8566111-4 (Version None)
Quarter: 2012Q3

REPORT INFORMATION
  Report Type: 
  Country: None (occurrence: None)
  Receive Date: 20120803
  Receipt Date: 20110822
  Transmission Date: 20120928
  Serious: No
  Sender: FDA-Public Use
  Company Number: US-ABBOTT-11P-163-0848519-00

PATIENT
  Sex: Female
  Weight: 68.1 kg

DRUGS (3)
  1. AMBIEN [Concomitant]
     Indication: PRODUCT USED FOR UNKNOWN INDICATION
     Dosage: AT BEDTIME
     Route: 048
  2. ATIVAN [Concomitant]
     Indication: PRODUCT USED FOR UNKNOWN INDICATION
     Dosage: AT BEDTIME
     Route: 048
  3. NIASPAN [Suspect]
     Indication: BLOOD TRIGLYCERIDES INCREASED
     Dosage: IN THE MORNNING
     Route: 048
     Dates: start: 20110815

REACTIONS (8)
  - FLUSHING [None]
  - BURNING SENSATION [None]
  - PRURITUS GENERALISED [None]
  - NAUSEA [None]
  - DIZZINESS [None]
  - HYPOGLYCAEMIA [None]
  - ERYTHEMA [None]
  - FREQUENT BOWEL MOVEMENTS [None]
